FAERS Safety Report 7164208 (Version 8)
Quarter: 2014Q2

REPORT INFORMATION
  Report Type: Spontaneous
  Country: US (occurrence: US)
  Receive Date: 20091102
  Receipt Date: 20140611
  Transmission Date: 20141212
  Serious: Yes (Death, Hospitalization, Other)
  Sender: FDA-Public Use
  Company Number: US-ALEXION-A200900874

PATIENT
  Sex: 0

DRUGS (11)
  1. SOLIRIS [Suspect]
     Indication: PAROXYSMAL NOCTURNAL HAEMOGLOBINURIA
     Dosage: 600 MG, UNK
     Route: 042
     Dates: start: 20080909
  2. SOLIRIS [Suspect]
     Dosage: 900 MG Q2W
     Route: 042
     Dates: start: 20081007, end: 20091021
  3. PROCRIT                            /00909301/ [Concomitant]
     Indication: PRODUCT USED FOR UNKNOWN INDICATION
     Dosage: UNK, Q2W
     Route: 065
     Dates: start: 20090729
  4. LORAZEPAM [Concomitant]
     Indication: PRODUCT USED FOR UNKNOWN INDICATION
     Dosage: UNK
     Route: 048
  5. FIORICET [Concomitant]
     Indication: HEADACHE
     Dosage: UNK
     Route: 048
  6. FOLIC ACID [Concomitant]
     Indication: PRODUCT USED FOR UNKNOWN INDICATION
     Dosage: UNK
     Route: 048
  7. METFORMIN [Concomitant]
     Indication: PRODUCT USED FOR UNKNOWN INDICATION
     Dosage: UNK
     Route: 048
  8. DACOGEN [Concomitant]
     Indication: PRODUCT USED FOR UNKNOWN INDICATION
     Dosage: UNK
     Route: 065
  9. LYRICA [Concomitant]
     Indication: FIBROMYALGIA
     Route: 065
  10. PERCOCET                           /00446701/ [Concomitant]
     Indication: PRODUCT USED FOR UNKNOWN INDICATION
     Dosage: 40 KIU, QW
     Route: 065
     Dates: start: 20090828
  11. AMITRIPTYLINE [Concomitant]
     Indication: PRODUCT USED FOR UNKNOWN INDICATION
     Dosage: UNK
     Route: 065

REACTIONS (16)
  - Central nervous system haemorrhage [Fatal]
  - Thrombocytopenia [Fatal]
  - Leukaemia [Fatal]
  - Neutropenia [Unknown]
  - Transfusion reaction [Recovered/Resolved]
  - Chills [Recovered/Resolved]
  - Pyrexia [Recovered/Resolved]
  - Platelet count decreased [Unknown]
  - Pneumonia [Unknown]
  - Pupil fixed [Unknown]
  - Refractory cytopenia with unilineage dysplasia [Not Recovered/Not Resolved]
  - Myelodysplastic syndrome [Not Recovered/Not Resolved]
  - Fibromyalgia [Unknown]
  - Contusion [Unknown]
  - Decreased appetite [Not Recovered/Not Resolved]
  - Anxiety [Unknown]
